FAERS Safety Report 7442108-2 (Version None)
Quarter: 2011Q2

REPORT INFORMATION
  Report Type: 
  Country: None (occurrence: None)
  Receive Date: 20110420
  Receipt Date: 20110414
  Transmission Date: 20111010
  Serious: Yes (Other)
  Sender: FDA-Public Use
  Company Number: 2011SP006399

PATIENT
  Age: 45 Year
  Sex: Female

DRUGS (1)
  1. SAPHRIS [Suspect]
     Indication: PRODUCT USED FOR UNKNOWN INDICATION
     Dosage: 5 MG; HS; PO
     Route: 048
     Dates: start: 20110201

REACTIONS (3)
  - UNDERDOSE [None]
  - INCORRECT ROUTE OF DRUG ADMINISTRATION [None]
  - CORNEAL OEDEMA [None]
